APPROVED DRUG PRODUCT: AZACITIDINE
Active Ingredient: AZACITIDINE
Strength: 100MG/VIAL
Dosage Form/Route: POWDER;INTRAVENOUS, SUBCUTANEOUS
Application: A215905 | Product #001 | TE Code: AP
Applicant: JIANGSU HANSOH PHARMACEUTICAL GROUP CO LTD
Approved: Jun 28, 2023 | RLD: No | RS: No | Type: RX